FAERS Safety Report 20716043 (Version 3)
Quarter: 2024Q4

REPORT INFORMATION
  Report Type: Report from Study
  Country: DE (occurrence: DE)
  Receive Date: 20220415
  Receipt Date: 20241114
  Transmission Date: 20250115
  Serious: Yes (Congenital Anomaly, Other)
  Sender: BRISTOL-MYERS SQUIBB COMPANY
  Company Number: DE-CELGENE-DEU-20220105687

PATIENT

DRUGS (2)
  1. ZEPOSIA [Suspect]
     Active Substance: OZANIMOD HYDROCHLORIDE
     Indication: Product used for unknown indication
     Route: 064
     Dates: start: 20210511, end: 20220119
  2. PRAMIPEXOLE [Concomitant]
     Active Substance: PRAMIPEXOLE\PRAMIPEXOLE DIHYDROCHLORIDE
     Indication: Product used for unknown indication
     Route: 064
     Dates: start: 2013

REACTIONS (3)
  - Trisomy 21 [Unknown]
  - Foetal exposure during pregnancy [Unknown]
  - Congenital intestinal malformation [Unknown]
